FAERS Safety Report 11387692 (Version 1)
Quarter: 2015Q3

REPORT INFORMATION
  Report Type: Spontaneous
  Country: IN (occurrence: IN)
  Receive Date: 20150817
  Receipt Date: 20150817
  Transmission Date: 20151125
  Serious: Yes (Death, Hospitalization)
  Sender: FDA-Public Use
  Company Number: IN-PFIZER INC-2015264262

PATIENT
  Age: 32 Year
  Sex: Male

DRUGS (1)
  1. CRIZALK [Suspect]
     Active Substance: CRIZOTINIB
     Indication: NON-SMALL CELL LUNG CANCER METASTATIC
     Dosage: 250 MG, 2X/DAY
     Route: 048
     Dates: start: 20141001, end: 201411

REACTIONS (4)
  - Non-small cell lung cancer metastatic [Unknown]
  - Disease progression [Unknown]
  - Dyspnoea [Unknown]
  - Cardiac failure [Fatal]
